FAERS Safety Report 6774073-5 (Version None)
Quarter: 2010Q2

REPORT INFORMATION
  Report Type: 
  Country: None (occurrence: None)
  Receive Date: 20100616
  Receipt Date: 20100616
  Transmission Date: 20101027
  Serious: Yes (Death, Hospitalization)
  Sender: FDA-Public Use
  Company Number: None

PATIENT
  Age: 76 Year
  Sex: Male
  Weight: 104.8 kg

DRUGS (36)
  1. CORDARONE [Suspect]
     Dosage: UNKNOWN; WAS A HOME MED
  2. ACCUCHECK BLOOD GLUCOSE [Concomitant]
  3. AMBIEN [Concomitant]
  4. AQUAMEPHYTON [Concomitant]
  5. ASPIRIN [Concomitant]
  6. ATIVAN [Concomitant]
  7. AVODART [Concomitant]
  8. BAZA CREAM [Concomitant]
  9. CIPRO [Concomitant]
  10. COREG [Concomitant]
  11. DIFLUCAN [Concomitant]
  12. DUCOLAX SUPP [Concomitant]
  13. FRAGMIN [Concomitant]
  14. GLUCOPHAGE [Concomitant]
  15. GLUCOTROL [Concomitant]
  16. IMDUR [Concomitant]
  17. LASIX [Concomitant]
  18. LEVAQUIN [Concomitant]
  19. LEVEMIR [Concomitant]
  20. MAG CITRATE [Concomitant]
  21. MAGNESIUM SULFATE [Concomitant]
  22. SODIUM CHLORIDE [Concomitant]
  23. MAXIPIME + DEXTROSE [Concomitant]
  24. MOM [Concomitant]
  25. MORPHINE [Concomitant]
  26. NOVOLIN R [Concomitant]
  27. NOVOLOG [Concomitant]
  28. RANEXA [Concomitant]
  29. ROBITUSSIN [Concomitant]
  30. SOLU-MEDROL [Concomitant]
  31. TYLENOL [Concomitant]
  32. VANCOCIN + NACL [Concomitant]
  33. XOPENEX SOLN [Concomitant]
  34. ZESTRIL [Concomitant]
  35. ZOCOR [Concomitant]
  36. ZOFRAN [Concomitant]

REACTIONS (5)
  - DRUG TOXICITY [None]
  - LUNG INFILTRATION [None]
  - PULMONARY TOXICITY [None]
  - RESPIRATORY FAILURE [None]
  - RHEUMATOID FACTOR POSITIVE [None]
